FAERS Safety Report 18967239 (Version 2)
Quarter: 2021Q1

REPORT INFORMATION
  Report Type: Spontaneous
  Country: RO (occurrence: RO)
  Receive Date: 20210304
  Receipt Date: 20210319
  Transmission Date: 20210420
  Serious: Yes (Other)
  Sender: FDA-Public Use
  Company Number: RO-SUN PHARMACEUTICAL INDUSTRIES LTD-2021RR-284143

PATIENT
  Age: 40 Year
  Sex: Female

DRUGS (3)
  1. VESSEL DUE F [Suspect]
     Active Substance: SULODEXIDE
     Indication: HYPERTENSION
     Dosage: UNK
     Route: 065
  2. ASPENTER [Suspect]
     Active Substance: ASPIRIN
     Indication: HYPERTENSION
     Dosage: UNK
     Route: 065
  3. SERMION (NICERGOLINE) [Suspect]
     Active Substance: NICERGOLINE
     Indication: HYPERTENSION
     Dosage: UNK
     Route: 065

REACTIONS (1)
  - Disease progression [Unknown]
